FAERS Safety Report 16802403 (Version 1)
Quarter: 2019Q3

REPORT INFORMATION
  Report Type: Spontaneous
  Country: PT (occurrence: PT)
  Receive Date: 20190912
  Receipt Date: 20190912
  Transmission Date: 20191005
  Serious: Yes (Other)
  Sender: FDA-Public Use
  Company Number: PHHY2019PT211754

PATIENT
  Sex: Male

DRUGS (2)
  1. ENTRESTO [Suspect]
     Active Substance: SACUBITRIL\VALSARTAN
     Indication: CARDIAC FAILURE
     Dosage: 50 MG, QD
     Route: 048
  2. DIURETIC [Concomitant]
     Active Substance: UNSPECIFIED INGREDIENT
     Indication: DIURETIC THERAPY
     Dosage: UNK
     Route: 065

REACTIONS (3)
  - Urine flow decreased [Unknown]
  - Intentional product misuse [Unknown]
  - Hypotension [Unknown]
